FAERS Safety Report 6393886-5 (Version None)
Quarter: 2009Q4

REPORT INFORMATION
  Report Type: 
  Country: None (occurrence: None)
  Receive Date: 20091008
  Receipt Date: 20090929
  Transmission Date: 20100525
  Serious: Yes (Other)
  Sender: FDA-Public Use
  Company Number: US-AVENTIS-200918751US

PATIENT
  Sex: Female

DRUGS (2)
  1. LANTUS [Suspect]
     Dosage: DOSE: 20 UNITS IN THE MORNING AND 16 UNITS AT NIGHT
     Route: 058
     Dates: start: 20071201, end: 20090601
  2. NOVOLOG [Concomitant]
     Dosage: DOSE: UNK

REACTIONS (2)
  - BENIGN BREAST NEOPLASM [None]
  - BREAST CANCER [None]
